FAERS Safety Report 8449779-2 (Version None)
Quarter: 2012Q2

REPORT INFORMATION
  Report Type: 
  Country: None (occurrence: None)
  Receive Date: 20120620
  Receipt Date: 20120611
  Transmission Date: 20120825
  Serious: Yes (Hospitalization)
  Sender: FDA-Public Use
  Company Number: US-BAYER-2012-018526

PATIENT
  Age: 27 Year
  Sex: Female
  Weight: 104.31 kg

DRUGS (4)
  1. YAZ [Suspect]
     Dosage: UNK
  2. CEPHALEXIN [Concomitant]
     Dosage: 500 MG, QID
     Dates: start: 20070804, end: 20070808
  3. NEO SYNEPHRIN [Concomitant]
     Dosage: 1-2 SPRAYS Q4HR
     Dates: start: 20070804
  4. YASMIN [Suspect]

REACTIONS (1)
  - IDIOPATHIC THROMBOCYTOPENIC PURPURA [None]
